FAERS Safety Report 7885477-1 (Version None)
Quarter: 2011Q4

REPORT INFORMATION
  Report Type: 
  Country: None (occurrence: None)
  Receive Date: 20111102
  Receipt Date: 20111026
  Transmission Date: 20120403
  Serious: Yes (Hospitalization)
  Sender: FDA-Public Use
  Company Number: US-GILEAD-2011-0045997

PATIENT
  Age: 44 Year
  Sex: Male

DRUGS (5)
  1. REVATIO [Concomitant]
  2. VENTAVIS [Concomitant]
     Indication: PULMONARY HYPERTENSION
  3. LETAIRIS [Suspect]
     Indication: PULMONARY HYPERTENSION
     Dosage: 10 MG, UNK
     Route: 048
     Dates: start: 20110924
  4. REMODULIN [Concomitant]
  5. TYVASO [Concomitant]

REACTIONS (2)
  - PULMONARY HYPERTENSION [None]
  - HYPOXIA [None]
